FAERS Safety Report 7148862-1 (Version None)
Quarter: 2010Q4

REPORT INFORMATION
  Report Type: 
  Country: None (occurrence: None)
  Receive Date: 20101209
  Receipt Date: 20101206
  Transmission Date: 20110411
  Serious: Yes (Death, Hospitalization)
  Sender: FDA-Public Use
  Company Number: US-B.I. PHARMACEUTICALS,INC./RIDGEFIELD-2010-BP-13490BP

PATIENT
  Sex: Male

DRUGS (5)
  1. SPIRIVA [Suspect]
     Indication: EMPHYSEMA
     Route: 055
     Dates: start: 20080101
  2. SPIRIVA [Suspect]
     Indication: ASTHMA
  3. PROAIR HFA [Concomitant]
     Indication: EMPHYSEMA
  4. SYMBICORT [Concomitant]
     Indication: EMPHYSEMA
  5. METOPROLOL [Concomitant]
     Indication: HYPERTENSION

REACTIONS (3)
  - LIVER DISORDER [None]
  - PNEUMONIA [None]
  - STAPHYLOCOCCAL INFECTION [None]
